FAERS Safety Report 22228688 (Version 1)
Quarter: 2023Q2

REPORT INFORMATION
  Report Type: Spontaneous
  Country: US (occurrence: None)
  Receive Date: 20230418
  Receipt Date: 20230418
  Transmission Date: 20230721
  Serious: No
  Sender: FDA-Public Use
  Company Number: None

PATIENT
  Age: 56 Year
  Sex: Female
  Weight: 72 kg

DRUGS (1)
  1. ZOLEDRONIC ACID [Suspect]
     Active Substance: ZOLEDRONIC ACID
     Indication: Osteoporotic fracture
     Dosage: 5 MG ONE DOSE INTRAVENOUS?
     Route: 042
     Dates: start: 20220413

REACTIONS (6)
  - Arthralgia [None]
  - Back pain [None]
  - Asthenia [None]
  - Neck pain [None]
  - Joint noise [None]
  - Blood creatinine abnormal [None]
